FAERS Safety Report 5049394-7 (Version None)
Quarter: 2006Q2

REPORT INFORMATION
  Report Type: 
  Country: None (occurrence: None)
  Receive Date: 20060613
  Receipt Date: 20060314
  Transmission Date: 20061013
  Serious: No
  Sender: FDA-Public Use
  Company Number: 2006-00399

PATIENT
  Sex: Male

DRUGS (3)
  1. VELCADE [Suspect]
     Indication: MULTIPLE MYELOMA
     Dosage: 3.00 MG IV BOLUS
     Route: 040
     Dates: start: 20060117, end: 20060201
  2. LASIX [Concomitant]
  3. OXYGEN (OXYGEN) [Concomitant]

REACTIONS (1)
  - DYSPNOEA [None]
